FAERS Safety Report 7311198-X (Version None)
Quarter: 2011Q1

REPORT INFORMATION
  Report Type: 
  Country: None (occurrence: None)
  Receive Date: 20110224
  Receipt Date: 20110207
  Transmission Date: 20110831
  Serious: Yes (Other)
  Sender: FDA-Public Use
  Company Number: US-BAYER-201032403NA

PATIENT
  Sex: Female

DRUGS (2)
  1. YAZ [Suspect]
     Indication: PRODUCT USED FOR UNKNOWN INDICATION
     Dosage: UNK UNK, QD
     Route: 048
     Dates: start: 20080701, end: 20080815
  2. COUMADIN [Concomitant]

REACTIONS (3)
  - PULMONARY EMBOLISM [None]
  - PHLEBITIS [None]
  - OEDEMA PERIPHERAL [None]
